FAERS Safety Report 5768937-9 (Version None)
Quarter: 2008Q2

REPORT INFORMATION
  Report Type: 
  Country: None (occurrence: None)
  Receive Date: 20080610
  Receipt Date: 20080529
  Transmission Date: 20081010
  Serious: Yes (Other)
  Sender: FDA-Public Use
  Company Number: 2008AP000222

PATIENT
  Age: 14 Year
  Sex: Female

DRUGS (13)
  1. PAROXETINE HCL [Suspect]
     Indication: DEPRESSION
     Dosage: 20 MG; TAB; PO; QD; 20 MG; TAB; PO; QD; 30 MG; TAB; PO; QD; 30 MG; TAB; PO; QD
     Route: 048
     Dates: start: 20000314, end: 20001101
  2. PAROXETINE HCL [Suspect]
     Indication: DEPRESSION
     Dosage: 20 MG; TAB; PO; QD; 20 MG; TAB; PO; QD; 30 MG; TAB; PO; QD; 30 MG; TAB; PO; QD
     Route: 048
     Dates: start: 20001115, end: 20011022
  3. PAROXETINE HCL [Suspect]
     Indication: DEPRESSION
     Dosage: 20 MG; TAB; PO; QD; 20 MG; TAB; PO; QD; 30 MG; TAB; PO; QD; 30 MG; TAB; PO; QD
     Route: 048
     Dates: end: 20030728
  4. PAROXETINE HCL [Suspect]
     Indication: DEPRESSION
     Dosage: 20 MG; TAB; PO; QD; 20 MG; TAB; PO; QD; 30 MG; TAB; PO; QD; 30 MG; TAB; PO; QD
     Route: 048
     Dates: end: 20031209
  5. PAROXETINE HCL [Suspect]
     Indication: DEPRESSION
     Dosage: 20 MG; TAB; PO; QD; 20 MG; TAB; PO; QD; 30 MG; TAB; PO; QD; 30 MG; TAB; PO; QD
     Route: 048
     Dates: start: 20030514, end: 20040601
  6. PAROXETINE HCL [Suspect]
     Indication: DEPRESSION
     Dosage: 20 MG; TAB; PO; QD; 20 MG; TAB; PO; QD; 30 MG; TAB; PO; QD; 30 MG; TAB; PO; QD
     Route: 048
     Dates: start: 19991215
  7. PAROXETINE HCL [Suspect]
     Indication: DEPRESSION
     Dosage: 20 MG; TAB; PO; QD; 20 MG; TAB; PO; QD; 30 MG; TAB; PO; QD; 30 MG; TAB; PO; QD
     Route: 048
     Dates: start: 20030601
  8. PAROXETINE HCL [Suspect]
     Indication: DEPRESSION
     Dosage: 20 MG; TAB; PO; QD; 20 MG; TAB; PO; QD; 30 MG; TAB; PO; QD; 30 MG; TAB; PO; QD
     Route: 048
     Dates: start: 20030602
  9. PAROXETINE HCL [Suspect]
     Indication: DEPRESSION
     Dosage: 20 MG; TAB; PO; QD; 20 MG; TAB; PO; QD; 30 MG; TAB; PO; QD; 30 MG; TAB; PO; QD
     Route: 048
     Dates: start: 20030814
  10. PAROXETINE HCL [Suspect]
     Indication: DEPRESSION
     Dosage: 20 MG; TAB; PO; QD; 20 MG; TAB; PO; QD; 30 MG; TAB; PO; QD; 30 MG; TAB; PO; QD
     Route: 048
     Dates: start: 20031009
  11. PAROXETINE HCL [Suspect]
     Indication: DEPRESSION
     Dosage: 20 MG; TAB; PO; QD; 20 MG; TAB; PO; QD; 30 MG; TAB; PO; QD; 30 MG; TAB; PO; QD
     Route: 048
     Dates: start: 20040903
  12. CANNABIS (CANNABIS) [Concomitant]
  13. VENLAFAXINE HCL [Concomitant]

REACTIONS (21)
  - ABSCESS LIMB [None]
  - AGGRESSION [None]
  - ANGER [None]
  - ANXIETY [None]
  - DEPRESSION [None]
  - DYSSTASIA [None]
  - FATIGUE [None]
  - FEELING ABNORMAL [None]
  - GAIT DISTURBANCE [None]
  - HEADACHE [None]
  - HYPERACUSIS [None]
  - NAUSEA [None]
  - PARAESTHESIA [None]
  - STRESS [None]
  - SUICIDAL IDEATION [None]
  - SUICIDE ATTEMPT [None]
  - TINNITUS [None]
  - VISION BLURRED [None]
  - VOMITING [None]
  - WEIGHT DECREASED [None]
  - WITHDRAWAL SYNDROME [None]
